FAERS Safety Report 17243970 (Version 1)
Quarter: 2020Q1

REPORT INFORMATION
  Report Type: Spontaneous
  Country: GB (occurrence: GB)
  Receive Date: 20200107
  Receipt Date: 20200107
  Transmission Date: 20200409
  Serious: Yes (Other)
  Sender: FDA-Public Use
  Company Number: GB-DRREDDYS-GER/UKI/20/0118002

PATIENT
  Sex: Male

DRUGS (2)
  1. FEXOFENADINE HYDROCHLORIDE 180 [Suspect]
     Active Substance: FEXOFENADINE HYDROCHLORIDE
     Indication: PRODUCT USED FOR UNKNOWN INDICATION
     Route: 048
  2. FEXOFENADINE HYDROCHLORIDE 180 [Suspect]
     Active Substance: FEXOFENADINE HYDROCHLORIDE
     Route: 048

REACTIONS (2)
  - Seizure [Unknown]
  - Loss of consciousness [Unknown]
